FAERS Safety Report 8422951-3 (Version None)
Quarter: 2012Q2

REPORT INFORMATION
  Report Type: 
  Country: None (occurrence: None)
  Receive Date: 20120608
  Receipt Date: 20120530
  Transmission Date: 20120825
  Serious: Yes (Hospitalization)
  Sender: FDA-Public Use
  Company Number: FR-GLAXOSMITHKLINE-B0804821A

PATIENT
  Sex: Male

DRUGS (9)
  1. SECTRAL [Concomitant]
     Route: 065
  2. BROMAZEPAM [Suspect]
     Indication: DEPRESSION
     Dosage: .5TAB PER DAY
     Route: 048
     Dates: start: 20070101, end: 20120419
  3. PROCORALAN [Concomitant]
     Route: 065
  4. PERINDOPRIL ERBUMINE [Concomitant]
     Route: 065
  5. ASPIRIN [Concomitant]
     Route: 065
  6. AVODART [Suspect]
     Indication: BENIGN PROSTATIC HYPERPLASIA
     Dosage: .5MG PER DAY
     Route: 048
     Dates: start: 20100501, end: 20120402
  7. AMLODIPINE [Concomitant]
     Route: 065
  8. ATARAX [Suspect]
     Indication: DEPRESSION
     Dosage: 75MG PER DAY
     Route: 048
     Dates: start: 20070101, end: 20120419
  9. IKOREL [Concomitant]
     Route: 065

REACTIONS (2)
  - POLLAKIURIA [None]
  - URINARY RETENTION [None]
